FAERS Safety Report 18765802 (Version 2)
Quarter: 2021Q1

REPORT INFORMATION
  Report Type: Spontaneous
  Country: US (occurrence: US)
  Receive Date: 20210120
  Receipt Date: 20210202
  Transmission Date: 20210419
  Serious: Yes (Other)
  Sender: FDA-Public Use
  Company Number: US-BRISTOL-MYERS SQUIBB COMPANY-BMS-2021-004714

PATIENT
  Age: 65 Year
  Sex: Male

DRUGS (1)
  1. NIVOLUMAB [Suspect]
     Active Substance: NIVOLUMAB
     Indication: DEDIFFERENTIATED LIPOSARCOMA
     Dosage: UNK
     Route: 065
     Dates: start: 20180906

REACTIONS (2)
  - Glomerulonephritis [Unknown]
  - Intentional product use issue [Unknown]
